FAERS Safety Report 16008957 (Version 1)
Quarter: 2019Q1

REPORT INFORMATION
  Report Type: Report from Study
  Country: ES (occurrence: ES)
  Receive Date: 20190225
  Receipt Date: 20190225
  Transmission Date: 20190418
  Serious: Yes (Other)
  Sender: FDA-Public Use
  Company Number: ES-ROCHE-2265622

PATIENT

DRUGS (2)
  1. TOCILIZUMAB. [Suspect]
     Active Substance: TOCILIZUMAB
     Indication: RHEUMATOID ARTHRITIS
     Route: 042
  2. TOCILIZUMAB. [Suspect]
     Active Substance: TOCILIZUMAB
     Indication: RHEUMATOID ARTHRITIS
     Route: 058

REACTIONS (9)
  - Infection [Unknown]
  - Injection site reaction [Unknown]
  - Respiratory tract infection [Unknown]
  - Hypertransaminasaemia [Unknown]
  - Presyncope [Unknown]
  - Leukopenia [Unknown]
  - Diverticulitis [Unknown]
  - Renal neoplasm [Unknown]
  - Hypercholesterolaemia [Unknown]
